FAERS Safety Report 9579062 (Version 1)
Quarter: 2013Q4

REPORT INFORMATION
  Report Type: Spontaneous
  Country: US (occurrence: US)
  Receive Date: 20131001
  Receipt Date: 20131001
  Transmission Date: 20140711
  Serious: No
  Sender: FDA-Public Use
  Company Number: US-AMGEN-USASP2013016265

PATIENT
  Age: 59 Year
  Sex: Male
  Weight: 95.24 kg

DRUGS (9)
  1. ENBREL [Suspect]
     Indication: RHEUMATOID ARTHRITIS
     Dosage: 50 MG, QWK
     Route: 058
  2. ZOLPIDEM [Concomitant]
     Dosage: 5 MG, UNK
  3. ORENCIA [Concomitant]
     Dosage: 125 MG, UNK
  4. VICODIN ES [Concomitant]
     Dosage: TAB 7.5- 300
  5. TRICOR                             /00090101/ [Concomitant]
     Dosage: 145 MG, UNK
  6. METFORMIN [Concomitant]
     Dosage: 500 MG, UNK
  7. SIMVASTATIN [Concomitant]
     Dosage: 10 MG, UNK
  8. GLYBURIDE [Concomitant]
     Dosage: 5 MG, UNK
  9. WARFARIN [Concomitant]
     Dosage: 10 MG, UNK

REACTIONS (1)
  - Therapeutic response decreased [Unknown]
